FAERS Safety Report 7368371-4 (Version None)
Quarter: 2011Q1

REPORT INFORMATION
  Report Type: 
  Country: None (occurrence: None)
  Receive Date: 20110225
  Receipt Date: 20101210
  Transmission Date: 20110831
  Serious: No
  Sender: FDA-Public Use
  Company Number: 320043

PATIENT
  Age: 71 Year
  Sex: Female

DRUGS (3)
  1. VICTOZA [Suspect]
     Indication: WEIGHT CONTROL
     Dosage: SUBCUTANEOUS
     Route: 058
     Dates: start: 20100901
  2. LANTUS [Concomitant]
  3. HUMALOG [Concomitant]

REACTIONS (2)
  - DECREASED APPETITE [None]
  - DRUG INEFFECTIVE [None]
